FAERS Safety Report 6414152-5 (Version None)
Quarter: 2009Q4

REPORT INFORMATION
  Report Type: 
  Country: None (occurrence: None)
  Receive Date: 20091026
  Receipt Date: 20091013
  Transmission Date: 20100525
  Serious: Yes (Other)
  Sender: FDA-Public Use
  Company Number: US-PFIZER INC-2009283224

PATIENT
  Sex: Female
  Weight: 85.714 kg

DRUGS (3)
  1. LYRICA [Suspect]
     Dosage: 50 MG, 1X/DAY
     Route: 048
  2. LYRICA [Suspect]
     Dosage: 75 MG, 1X/DAY
     Route: 048
     Dates: start: 20091001
  3. BENICAR [Concomitant]

REACTIONS (5)
  - DIZZINESS [None]
  - JOINT LOCK [None]
  - MUSCLE TIGHTNESS [None]
  - OEDEMA PERIPHERAL [None]
  - VISION BLURRED [None]
